FAERS Safety Report 24549254 (Version 1)
Quarter: 2024Q4

REPORT INFORMATION
  Report Type: Spontaneous
  Country: US (occurrence: US)
  Receive Date: 20241025
  Receipt Date: 20241025
  Transmission Date: 20250114
  Serious: Yes (Other)
  Sender: ELI LILLY AND COMPANY
  Company Number: US-ELI_LILLY_AND_COMPANY-US202410009156

PATIENT
  Age: 70 Year
  Sex: Female

DRUGS (2)
  1. FORTEO [Suspect]
     Active Substance: TERIPARATIDE
     Indication: Osteoporosis
     Dosage: UNK, UNKNOWN
     Route: 065
     Dates: start: 201206, end: 201406
  2. FORTEO [Suspect]
     Active Substance: TERIPARATIDE
     Dosage: UNK UNK, UNKNOWN
     Route: 065
     Dates: start: 201805

REACTIONS (10)
  - Fibula fracture [Unknown]
  - Spinal disorder [Unknown]
  - Pain [Unknown]
  - Cough [Unknown]
  - Product use issue [Unknown]
  - Osteoporosis [Unknown]
  - Tibia fracture [Unknown]
  - Illness [Unknown]
  - Rib fracture [Unknown]
  - Fracture [Unknown]

NARRATIVE: CASE EVENT DATE: 20180501
